FAERS Safety Report 25733628 (Version 4)
Quarter: 2025Q4

REPORT INFORMATION
  Report Type: Report from Study
  Country: CO (occurrence: CO)
  Receive Date: 20250828
  Receipt Date: 20251007
  Transmission Date: 20260118
  Serious: Yes (Death)
  Sender: ABBVIE
  Company Number: CO-ABBVIE-6433824

PATIENT
  Age: 71 Year
  Sex: Female

DRUGS (1)
  1. VENCLEXTA [Suspect]
     Active Substance: VENETOCLAX
     Indication: Chronic lymphocytic leukaemia
     Dosage: STRENGTH: 100 MG, BOTTLE 100MG
     Route: 048
     Dates: start: 20250717, end: 20250820

REACTIONS (2)
  - Chronic lymphocytic leukaemia [Fatal]
  - Medication error [Unknown]

NARRATIVE: CASE EVENT DATE: 20250801
